FAERS Safety Report 6565043-0 (Version None)
Quarter: 2010Q1

REPORT INFORMATION
  Report Type: 
  Country: None (occurrence: None)
  Receive Date: 20100201
  Receipt Date: 20100121
  Transmission Date: 20100710
  Serious: Yes (Other)
  Sender: FDA-Public Use
  Company Number: JP-PFIZER INC-2010012204

PATIENT
  Age: 73 Year
  Sex: Male

DRUGS (1)
  1. CELECOX [Suspect]
     Dosage: 200 MG/DAY
     Route: 048
     Dates: start: 20100112, end: 20100119

REACTIONS (2)
  - BACK PAIN [None]
  - RENAL INFARCT [None]
